FAERS Safety Report 6728591-6 (Version None)
Quarter: 2010Q2

REPORT INFORMATION
  Report Type: 
  Country: None (occurrence: None)
  Receive Date: 20100517
  Receipt Date: 20100505
  Transmission Date: 20101027
  Serious: Yes (Other)
  Sender: FDA-Public Use
  Company Number: US-PFIZER INC-2009247363

PATIENT
  Sex: Male
  Weight: 74.5 kg

DRUGS (5)
  1. SUTENT [Suspect]
     Indication: RENAL CANCER METASTATIC
     Dosage: 50 MG, 1X/DAY
     Route: 048
     Dates: start: 20090401
  2. OXYCODONE HCL AND ACETAMINOPHEN [Concomitant]
     Indication: BACK PAIN
     Dosage: FREQUENCY: AS NEEDED,
     Route: 048
  3. RANITIDINE [Concomitant]
     Indication: HYPERCHLORHYDRIA
     Dosage: 150 MG, 1X/DAY
     Route: 048
  4. AMLODIPINE BESILATE [Concomitant]
     Indication: BLOOD PRESSURE INCREASED
     Dosage: 10 MG, 1X/DAY
     Route: 048
  5. VITAMIN B-12 [Concomitant]
     Dosage: UNK
     Route: 048

REACTIONS (2)
  - CONTUSION [None]
  - WHITE BLOOD CELL COUNT DECREASED [None]
